FAERS Safety Report 8435271-8 (Version None)
Quarter: 2012Q2

REPORT INFORMATION
  Report Type: 
  Country: None (occurrence: None)
  Receive Date: 20120614
  Receipt Date: 20120605
  Transmission Date: 20120825
  Serious: Yes (Other)
  Sender: FDA-Public Use
  Company Number: AU-JNJFOC-20120600839

PATIENT
  Age: 64 Year
  Sex: Female

DRUGS (3)
  1. DURAGESIC-100 [Suspect]
     Route: 062
  2. DURAGESIC-100 [Suspect]
     Indication: PRODUCT USED FOR UNKNOWN INDICATION
     Route: 062
  3. OXYCODONE HCL [Concomitant]
     Dosage: 10MG UP TO 6 A DAY
     Route: 065

REACTIONS (11)
  - INTERVERTEBRAL DISC OPERATION [None]
  - INTERVERTEBRAL DISC PROTRUSION [None]
  - ABNORMAL DREAMS [None]
  - BACK DISORDER [None]
  - NAUSEA [None]
  - NERVE INJURY [None]
  - AFFECT LABILITY [None]
  - CATARACT [None]
  - CONSTIPATION [None]
  - VOMITING [None]
  - DEPRESSION [None]
